FAERS Safety Report 7568775-0 (Version None)
Quarter: 2011Q2

REPORT INFORMATION
  Report Type: 
  Country: None (occurrence: None)
  Receive Date: 20110623
  Receipt Date: 20110610
  Transmission Date: 20111010
  Serious: Yes (Other)
  Sender: FDA-Public Use
  Company Number: US-ROCHE-782904

PATIENT
  Age: 74 Year
  Sex: Male
  Weight: 88.3 kg

DRUGS (16)
  1. LENALIDOMIDE [Suspect]
     Indication: PROSTATE CANCER METASTATIC
     Dosage: 25 MG QD ON DAYS 1-14.
     Route: 048
     Dates: start: 20100809
  2. ELIGARD [Concomitant]
  3. JANUVIA [Concomitant]
  4. DOCETAXEL [Suspect]
     Indication: PROSTATE CANCER METASTATIC
     Dosage: OVER 60 MINUTES ON DAY ONE
     Route: 042
     Dates: start: 20100809
  5. ASPIRIN [Concomitant]
  6. METOPROLOL TARTRATE [Concomitant]
  7. PREDNISONE [Suspect]
     Indication: PROSTATE CANCER METASTATIC
     Route: 048
     Dates: start: 20100809
  8. PLAVIX [Concomitant]
  9. RAPAFLO [Concomitant]
  10. LISINOPRIL [Concomitant]
  11. METFORMIN HCL [Concomitant]
  12. ZOMETA [Suspect]
     Route: 065
  13. BEVACIZUMAB [Suspect]
     Indication: PROSTATE CANCER METASTATIC
     Dosage: 30-90 MINUTES ON DAY ONE
     Route: 042
     Dates: start: 20100809
  14. FENOFIBRATE [Concomitant]
  15. IMODIUM [Concomitant]
  16. ZOCOR [Concomitant]

REACTIONS (1)
  - OSTEONECROSIS OF JAW [None]
